APPROVED DRUG PRODUCT: PREDNISOLONE SODIUM PHOSPHATE
Active Ingredient: PREDNISOLONE SODIUM PHOSPHATE
Strength: EQ 5MG BASE/5ML
Dosage Form/Route: SOLUTION;ORAL
Application: A076123 | Product #001
Applicant: PHARMACEUTICAL ASSOCIATES INC
Approved: Dec 23, 2002 | RLD: No | RS: No | Type: DISCN